FAERS Safety Report 5725078-4 (Version None)
Quarter: 2008Q2

REPORT INFORMATION
  Report Type: 
  Country: None (occurrence: None)
  Receive Date: 20080501
  Receipt Date: 20080429
  Transmission Date: 20081010
  Serious: Yes (Life-Threatening)
  Sender: FDA-Public Use
  Company Number: US-GILEAD-2008-0016279

PATIENT
  Sex: Male

DRUGS (9)
  1. LETAIRIS [Suspect]
     Indication: PULMONARY HYPERTENSION
     Route: 048
     Dates: start: 20080402, end: 20080410
  2. LASIX [Concomitant]
  3. SPIRONOLACTONE [Concomitant]
  4. WARFARIN SODIUM [Concomitant]
  5. NORVASC [Concomitant]
  6. LEVOTHROID [Concomitant]
  7. AMARYL [Concomitant]
  8. GLUCOPHAGE [Concomitant]
  9. PRILOSEC OTC [Concomitant]

REACTIONS (3)
  - CHEST PAIN [None]
  - FLUSHING [None]
  - MALAISE [None]
